FAERS Safety Report 24193524 (Version 3)
Quarter: 2024Q4

REPORT INFORMATION
  Report Type: Spontaneous
  Country: ES (occurrence: ES)
  Receive Date: 20240809
  Receipt Date: 20241213
  Transmission Date: 20250114
  Serious: Yes (Other)
  Sender: RANBAXY
  Company Number: ES-SUN PHARMACEUTICAL INDUSTRIES LTD-2024R1-460960

PATIENT
  Age: 60 Year
  Sex: Male

DRUGS (2)
  1. ABIRATERONE [Suspect]
     Active Substance: ABIRATERONE\ABIRATERONE ACETATE
     Indication: Neutropenia
     Dosage: 1000 MILLIGRAM, QD
     Route: 065
     Dates: start: 202109
  2. PREDNISONE [Suspect]
     Active Substance: PREDNISONE
     Indication: Neutropenia
     Dosage: 5 MILLIGRAM, BID
     Route: 065
     Dates: start: 202109

REACTIONS (2)
  - Disease recurrence [Unknown]
  - Toxicity to various agents [Unknown]
